FAERS Safety Report 21384034 (Version 1)
Quarter: 2022Q3

REPORT INFORMATION
  Report Type: Other
  Country: FR (occurrence: FR)
  Receive Date: 20220928
  Receipt Date: 20220928
  Transmission Date: 20221027
  Serious: No
  Sender: FDA-Public Use
  Company Number: FR-TOLMAR, INC.-22FR036649

PATIENT
  Age: 61 Year
  Sex: Male
  Weight: 78 kg

DRUGS (3)
  1. ELIGARD [Suspect]
     Active Substance: LEUPROLIDE ACETATE
     Indication: Prostate cancer recurrent
     Dosage: 45 MILLIGRAM, Q 6 MONTH
     Dates: start: 20220629
  2. BICALUTAMIDE [Concomitant]
     Active Substance: BICALUTAMIDE
     Indication: Prostate cancer recurrent
  3. RADIATION THERAPY [Concomitant]
     Active Substance: RADIATION THERAPY
     Indication: Prostate cancer recurrent
     Dosage: UNK

REACTIONS (1)
  - Hot flush [Not Recovered/Not Resolved]

NARRATIVE: CASE EVENT DATE: 20220630
